FAERS Safety Report 17529373 (Version 2)
Quarter: 2020Q1

REPORT INFORMATION
  Report Type: Spontaneous
  Country: IT (occurrence: IT)
  Receive Date: 20200311
  Receipt Date: 20200316
  Transmission Date: 20200409
  Serious: Yes (Other)
  Sender: FDA-Public Use
  Company Number: IT-MYLANLABS-2020M1026497

PATIENT
  Age: 73 Year
  Sex: Female

DRUGS (7)
  1. EPIRUBICIN [Suspect]
     Active Substance: EPIRUBICIN
     Indication: HER-2 POSITIVE BREAST CANCER
     Dosage: 90 MILLIGRAM/SQ. METER, CYCLE (WITH AN INTER-CYCLE INTERVAL OF 21 DAYS)
     Route: 065
  2. CYCLOPHOSPHAMIDE. [Concomitant]
     Active Substance: CYCLOPHOSPHAMIDE
     Indication: BREAST CANCER
     Dosage: 600 MILLIGRAM/SQ. METER (WITH EPIRUBICIN, WITH AN INTER-CYCLE INTERVAL OF 21 DAYS )
     Route: 065
  3. TRASTUZUMAB. [Suspect]
     Active Substance: TRASTUZUMAB
     Dosage: FOR THE FIRST WEEK ADMINISTERED WITH PACLITAXEL
     Route: 065
  4. TRASTUZUMAB. [Suspect]
     Active Substance: TRASTUZUMAB
     Indication: BREAST CANCER
     Dosage: FOR THE FIRST WEEK ADMINISTERED WITH PACLITAXEL
     Route: 065
  5. TRASTUZUMAB. [Suspect]
     Active Substance: TRASTUZUMAB
     Dosage: 6 MILLIGRAM/KILOGRAM, CYCLE (FOR SCHEDULED 13 CYCLES ADMINISTERED )
     Route: 065
  6. PACLITAXEL. [Concomitant]
     Active Substance: PACLITAXEL
     Indication: BREAST CANCER
     Dosage: 80 MILLIGRAM/SQ. METER, CYCLE (24 CYCLES WITH AN INTER-CYCLE INTERVAL OF 21 DAYS )
     Route: 065
  7. ENDOXAN                            /00021102/ [Suspect]
     Active Substance: CYCLOPHOSPHAMIDE
     Indication: HER-2 POSITIVE BREAST CANCER
     Dosage: 600 MILLIGRAM/SQ. METER, CYCLE (WITH AN INTER-CYCLE INTERVAL OF 21 DAYS)
     Route: 065

REACTIONS (1)
  - Cardiac dysfunction [Recovering/Resolving]
